FAERS Safety Report 21452045 (Version 1)
Quarter: 2022Q4

REPORT INFORMATION
  Report Type: Spontaneous
  Country: US (occurrence: US)
  Receive Date: 20221013
  Receipt Date: 20221013
  Transmission Date: 20230112
  Serious: Yes (Other)
  Sender: FDA-Public Use
  Company Number: US-SA-SAC20221012001363

PATIENT
  Age: 65 Year
  Sex: Male

DRUGS (1)
  1. ZANTAC [Suspect]
     Active Substance: RANITIDINE HYDROCHLORIDE
     Indication: Intestinal ulcer
     Dosage: 150 MG; QD
     Dates: start: 200501, end: 202001

REACTIONS (3)
  - Renal cancer [Unknown]
  - Lip and/or oral cavity cancer [Unknown]
  - Tonsil cancer [Unknown]

NARRATIVE: CASE EVENT DATE: 20190101
